FAERS Safety Report 10149097 (Version 6)
Quarter: 2014Q2

REPORT INFORMATION
  Report Type: Spontaneous
  Country: JP (occurrence: JP)
  Receive Date: 20140502
  Receipt Date: 20140620
  Transmission Date: 20141212
  Serious: Yes (Death, Hospitalization)
  Sender: FDA-Public Use
  Company Number: JP-JNJFOC-20140416849

PATIENT
  Age: 72 Year
  Sex: Male
  Weight: 49 kg

DRUGS (13)
  1. XEPLION [Suspect]
     Indication: SCHIZOPHRENIA
     Route: 030
     Dates: start: 20140320, end: 20140320
  2. XEPLION [Suspect]
     Indication: SCHIZOPHRENIA
     Route: 030
     Dates: start: 20140327, end: 20140327
  3. RISPERDAL [Suspect]
     Indication: SCHIZOPHRENIA
     Route: 048
     Dates: start: 201312, end: 20131214
  4. RISPERDAL [Suspect]
     Indication: SCHIZOPHRENIA
     Route: 048
     Dates: start: 20060522, end: 201312
  5. RISPERDAL [Suspect]
     Indication: SCHIZOPHRENIA
     Route: 048
     Dates: start: 20131215
  6. MAJORPIN [Suspect]
     Indication: SCHIZOPHRENIA
     Route: 048
     Dates: start: 20051205
  7. VEGETAMIN B [Suspect]
     Indication: SCHIZOPHRENIA
     Route: 048
     Dates: start: 20140123
  8. SEFMAZON [Concomitant]
     Indication: PNEUMOTHORAX
     Route: 065
     Dates: start: 20140414, end: 20140414
  9. TASMOLIN [Concomitant]
     Indication: PARKINSONISM
     Route: 048
  10. LIMAS [Concomitant]
     Indication: MOOD ALTERED
     Route: 048
     Dates: start: 20101113
  11. SILECE [Concomitant]
     Indication: SLEEP DISORDER
     Route: 048
     Dates: start: 20131226
  12. MAGNESIUM OXIDE [Concomitant]
     Indication: CONSTIPATION
     Route: 048
     Dates: start: 20140220
  13. GASTER [Concomitant]
     Indication: GASTRITIS
     Route: 048
     Dates: start: 20140220

REACTIONS (4)
  - Pulmonary embolism [Fatal]
  - Cardiac failure acute [Fatal]
  - Deep vein thrombosis [Fatal]
  - Pneumothorax traumatic [Recovered/Resolved]
